FAERS Safety Report 4498003-4 (Version None)
Quarter: 2004Q4

REPORT INFORMATION
  Report Type: 
  Country: None (occurrence: None)
  Receive Date: 20041109
  Receipt Date: 20041109
  Transmission Date: 20050328
  Serious: Yes (Hospitalization)
  Sender: FDA-Public Use
  Company Number: None

PATIENT
  Age: 76 Year
  Sex: Male
  Weight: 102.5 kg

DRUGS (7)
  1. DIGOXIN [Suspect]
     Dosage: 0.25MG DAILY ORAL
     Route: 048
     Dates: start: 20040501, end: 20040808
  2. SPIRONOLACTONE [Concomitant]
  3. FUROSEMIDE [Concomitant]
  4. PROPOXY/APAP [Concomitant]
  5. PEPCID AC [Concomitant]
  6. CALCIUM [Concomitant]
  7. OCUVITE [Concomitant]

REACTIONS (16)
  - ATRIOVENTRICULAR BLOCK FIRST DEGREE [None]
  - CARDIAC FAILURE CONGESTIVE [None]
  - CARDIOMYOPATHY [None]
  - DECREASED APPETITE [None]
  - DIARRHOEA [None]
  - DRUG TOXICITY [None]
  - DYSPNOEA [None]
  - DYSPNOEA EXERTIONAL [None]
  - FAECAL INCONTINENCE [None]
  - ISCHAEMIA [None]
  - JAUNDICE [None]
  - JOINT SWELLING [None]
  - METABOLIC DISORDER [None]
  - RENAL IMPAIRMENT [None]
  - URINARY INCONTINENCE [None]
  - VISUAL ACUITY REDUCED [None]
